FAERS Safety Report 5947065-3 (Version None)
Quarter: 2008Q4

REPORT INFORMATION
  Report Type: 
  Country: None (occurrence: None)
  Receive Date: 20081106
  Receipt Date: 20081028
  Transmission Date: 20090506
  Serious: Yes (Hospitalization)
  Sender: FDA-Public Use
  Company Number: 2008BI025739

PATIENT
  Age: 55 Year
  Sex: Female

DRUGS (3)
  1. TYSABRI [Suspect]
     Indication: MULTIPLE SCLEROSIS
     Dosage: 300 MG; QM; IV
     Route: 042
     Dates: start: 20080709
  2. CON MEDS [Concomitant]
  3. PREV MEDS [Concomitant]

REACTIONS (11)
  - ANGINA PECTORIS [None]
  - BALANCE DISORDER [None]
  - CHEST DISCOMFORT [None]
  - CONDITION AGGRAVATED [None]
  - CORONARY ARTERY DISEASE [None]
  - FACIAL PAIN [None]
  - FATIGUE [None]
  - HYPOAESTHESIA [None]
  - PAIN IN EXTREMITY [None]
  - PARAESTHESIA [None]
  - WEIGHT FLUCTUATION [None]
